FAERS Safety Report 8487508-7 (Version None)
Quarter: 2012Q3

REPORT INFORMATION
  Report Type: 
  Country: None (occurrence: None)
  Receive Date: 20120705
  Receipt Date: 20120628
  Transmission Date: 20120928
  Serious: Yes (Hospitalization, Other)
  Sender: FDA-Public Use
  Company Number: JP-BAYER-2011-004940

PATIENT
  Age: 65 Year
  Sex: Male

DRUGS (8)
  1. CHEMOTHERAPEUTICS NOS [Concomitant]
     Dosage: UNK
     Route: 013
     Dates: start: 20110215, end: 20110404
  2. NEXAVAR [Suspect]
     Dosage: DAILY DOSE 600 MG
     Route: 048
  3. COMBINATIONS OF ANTINEOPLASTIC AGENTS [Concomitant]
  4. FLUOROURACIL [Concomitant]
     Dosage: UNK
     Route: 013
     Dates: end: 20110405
  5. NEXAVAR [Suspect]
     Dosage: DAILY DOSE 400 MG
     Route: 048
     Dates: start: 20110215, end: 20110509
  6. NEXAVAR [Suspect]
     Indication: HEPATIC NEOPLASM MALIGNANT
     Dosage: DAILY DOSE 400 MG
     Route: 048
     Dates: start: 20101202
  7. NEXAVAR [Suspect]
     Dosage: DAILY DOSE 800 MG
     Route: 048
     Dates: start: 20110101
  8. CISPLATIN [Concomitant]
     Dosage: UNK
     Route: 013
     Dates: end: 20110405

REACTIONS (3)
  - NAUSEA [None]
  - HEPATIC NEOPLASM MALIGNANT [None]
  - HEPATIC ARTERY OCCLUSION [None]
